FAERS Safety Report 7106004-2 (Version None)
Quarter: 2010Q4

REPORT INFORMATION
  Report Type: 
  Country: None (occurrence: None)
  Receive Date: 20101116
  Receipt Date: 20101105
  Transmission Date: 20110411
  Serious: Yes (Hospitalization)
  Sender: FDA-Public Use
  Company Number: RO-JNJFOC-20101102512

PATIENT
  Sex: Male

DRUGS (5)
  1. INFLIXIMAB, RECOMBINANT [Suspect]
     Indication: PSORIASIS
     Route: 042
  2. INFLIXIMAB, RECOMBINANT [Suspect]
     Route: 042
  3. FLONIDAN [Concomitant]
     Indication: PREMEDICATION
     Route: 048
  4. HYDROCORTISONE [Concomitant]
     Indication: PREMEDICATION
     Route: 042
  5. PARACETAMOL [Concomitant]
     Indication: PREMEDICATION
     Route: 048

REACTIONS (6)
  - HYPERHIDROSIS [None]
  - HYPOTENSION [None]
  - INFUSION RELATED REACTION [None]
  - PALLOR [None]
  - PRURITUS [None]
  - RASH PAPULAR [None]
